FAERS Safety Report 6368401-2 (Version None)
Quarter: 2009Q3

REPORT INFORMATION
  Report Type: 
  Country: None (occurrence: None)
  Receive Date: 20090922
  Receipt Date: 20090915
  Transmission Date: 20100115
  Serious: No
  Sender: FDA-Public Use
  Company Number: US-ROXANE LABORATORIES, INC.-2009-RO-00976RO

PATIENT
  Sex: Male

DRUGS (1)
  1. RAMIPRIL [Suspect]
     Route: 048
     Dates: start: 20090801, end: 20090901

REACTIONS (2)
  - ARTHRITIS [None]
  - CONSTIPATION [None]
